FAERS Safety Report 5334333-1 (Version None)
Quarter: 2007Q2

REPORT INFORMATION
  Report Type: 
  Country: None (occurrence: None)
  Receive Date: 20070525
  Receipt Date: 20060726
  Transmission Date: 20071010
  Serious: No
  Sender: FDA-Public Use
  Company Number: US-BRISTOL-MYERS SQUIBB COMPANY-13455696

PATIENT
  Age: 3 Year
  Sex: Male

DRUGS (1)
  1. CYTOXAN [Suspect]

REACTIONS (2)
  - BLOOD URINE PRESENT [None]
  - MEDICATION ERROR [None]
